FAERS Safety Report 5268380-5 (Version None)
Quarter: 2007Q1

REPORT INFORMATION
  Report Type: 
  Country: None (occurrence: None)
  Receive Date: 20070319
  Receipt Date: 20070309
  Transmission Date: 20070707
  Serious: Yes (Life-Threatening)
  Sender: FDA-Public Use
  Company Number: SE-BAXTER-2007BH002832

PATIENT
  Sex: Male
  Weight: 68 kg

DRUGS (1)
  1. FEIBA VH IMMUNO [Suspect]
     Indication: FACTOR VIII INHIBITION
     Route: 065
     Dates: start: 20070309, end: 20070309

REACTIONS (2)
  - MYOCARDIAL INFARCTION [None]
  - PULMONARY OEDEMA [None]
